FAERS Safety Report 24799012 (Version 2)
Quarter: 2025Q1

REPORT INFORMATION
  Report Type: Report from Study
  Country: US (occurrence: US)
  Receive Date: 20250102
  Receipt Date: 20250303
  Transmission Date: 20250409
  Serious: Yes (Hospitalization, Other)
  Sender: GILEAD
  Company Number: US-GILEAD-2024-0693914

PATIENT
  Sex: Female

DRUGS (7)
  1. AMBRISENTAN [Suspect]
     Active Substance: AMBRISENTAN
     Indication: Pulmonary hypertension
     Dosage: 5 MG, QD
     Route: 065
     Dates: start: 20180123
  2. SILDENAFIL CITRATE [Concomitant]
     Active Substance: SILDENAFIL CITRATE
  3. ELIQUIS [Concomitant]
     Active Substance: APIXABAN
  4. ORENITRAM [Concomitant]
     Active Substance: TREPROSTINIL
  5. LASIX [Concomitant]
     Active Substance: FUROSEMIDE
  6. TORSEMIDE [Concomitant]
     Active Substance: TORSEMIDE
     Dates: start: 20241110
  7. SILDENAFIL [Concomitant]
     Active Substance: SILDENAFIL

REACTIONS (6)
  - Haemoglobin decreased [Unknown]
  - Anaemia [Unknown]
  - Dyspnoea [Unknown]
  - Hip fracture [Unknown]
  - Gait inability [Unknown]
  - Dizziness [Unknown]
